FAERS Safety Report 23038802 (Version 1)
Quarter: 2023Q4

REPORT INFORMATION
  Report Type: Spontaneous
  Country: US (occurrence: US)
  Receive Date: 20231006
  Receipt Date: 20231006
  Transmission Date: 20240110
  Serious: No
  Sender: FDA-Public Use
  Company Number: US-PFIZER INC-202300315877

PATIENT
  Age: 52 Year
  Sex: Female
  Weight: 74.84 kg

DRUGS (6)
  1. PAXLOVID [Interacting]
     Active Substance: NIRMATRELVIR\RITONAVIR
     Indication: COVID-19 treatment
     Dosage: UNK, 2X/DAY
     Route: 048
     Dates: start: 20230912, end: 20230917
  2. COUMADIN [Interacting]
     Active Substance: WARFARIN SODIUM
     Indication: Heart valve replacement
     Dosage: 6 MG
  3. COUMADIN [Interacting]
     Active Substance: WARFARIN SODIUM
     Indication: Anticoagulant therapy
  4. ROSUVASTATIN [Concomitant]
     Active Substance: ROSUVASTATIN
     Indication: Blood cholesterol abnormal
     Dosage: 40 MG
  5. ESCITALOPRAM [Concomitant]
     Active Substance: ESCITALOPRAM OXALATE
     Indication: Depression
     Dosage: 20 MG
  6. SPIRONOLACTONE [Concomitant]
     Active Substance: SPIRONOLACTONE
     Indication: Acne
     Dosage: 25 MG

REACTIONS (3)
  - Drug interaction [Recovered/Resolved]
  - Anticoagulation drug level decreased [Recovered/Resolved]
  - International normalised ratio decreased [Recovered/Resolved]

NARRATIVE: CASE EVENT DATE: 20230912
